FAERS Safety Report 7533248-8 (Version None)
Quarter: 2011Q2

REPORT INFORMATION
  Report Type: 
  Country: None (occurrence: None)
  Receive Date: 20110608
  Receipt Date: 20101230
  Transmission Date: 20111010
  Serious: Yes (Hospitalization, Other)
  Sender: FDA-Public Use
  Company Number: US-BAYER-201026508NA

PATIENT
  Age: 23 Year
  Sex: Female
  Weight: 127.89 kg

DRUGS (4)
  1. YAZ [Suspect]
     Indication: CONTRACEPTION
     Dosage: UNK UNK, UNK
     Route: 048
     Dates: start: 20060201, end: 20060701
  2. YASMIN [Suspect]
     Indication: CONTRACEPTION
     Dosage: UNK
     Route: 048
     Dates: start: 20060201, end: 20060701
  3. VIOKASE 16 [Concomitant]
  4. PROZAC [Concomitant]

REACTIONS (9)
  - GALLBLADDER DISORDER [None]
  - PANCREATIC PSEUDOCYST [None]
  - PULMONARY EMBOLISM [None]
  - DYSPNOEA [None]
  - VOMITING [None]
  - STAPHYLOCOCCAL INFECTION [None]
  - ABDOMINAL PAIN [None]
  - CHOLELITHIASIS [None]
  - PANCREATITIS [None]
